FAERS Safety Report 13386468 (Version 1)
Quarter: 2017Q1

REPORT INFORMATION
  Report Type: Spontaneous
  Country: US (occurrence: US)
  Receive Date: 20170330
  Receipt Date: 20170330
  Transmission Date: 20170429
  Serious: No
  Sender: FDA-Public Use
  Company Number: US-009507513-1703USA012490

PATIENT

DRUGS (1)
  1. NUVARING [Suspect]
     Active Substance: ETHINYL ESTRADIOL\ETONOGESTREL
     Route: 067

REACTIONS (4)
  - Complication of device removal [Unknown]
  - Surgery [Unknown]
  - Device difficult to use [Unknown]
  - Adverse event [Unknown]
